FAERS Safety Report 5467754-7 (Version None)
Quarter: 2007Q3

REPORT INFORMATION
  Report Type: 
  Country: None (occurrence: None)
  Receive Date: 20070926
  Receipt Date: 20070917
  Transmission Date: 20080115
  Serious: Yes (Hospitalization)
  Sender: FDA-Public Use
  Company Number: PHBS2007ES14543

PATIENT
  Age: 44 Year
  Sex: Male

DRUGS (5)
  1. LEPONEX [Suspect]
     Indication: SCHIZOPHRENIA
     Dosage: 700 MG/D
     Dates: start: 19990101
  2. TOPAMAX [Concomitant]
     Dosage: 100 MG, TID
  3. TRANXILIUM [Concomitant]
     Dosage: 25 MG, QD
  4. PLENUR [Concomitant]
     Dosage: 0.5 DF, QD
  5. LITIUM [Concomitant]

REACTIONS (1)
  - BONE MARROW FAILURE [None]
